FAERS Safety Report 9556521 (Version 1)
Quarter: 2013Q3

REPORT INFORMATION
  Report Type: Spontaneous
  Country: US (occurrence: None)
  Receive Date: 20130906
  Receipt Date: 20130906
  Transmission Date: 20140515
  Serious: Yes (Hospitalization)
  Sender: FDA-Public Use
  Company Number: 163-POMAL-13060867

PATIENT
  Age: 54 Year
  Sex: Male

DRUGS (9)
  1. POMALYST [Suspect]
     Indication: PLASMA CELL MYELOMA
     Route: 048
     Dates: start: 20101118
  2. BETAPACE (SOTALOL HYDROCHLORIDE) [Concomitant]
  3. CALCIUM + D (OS-CAL) [Concomitant]
  4. CORTEF (HYDROCORTISONE ACETATE) [Concomitant]
  5. DILAUDID (HYDROMORPHONE HYDROCHLORIDE) [Concomitant]
  6. FAMVIR (FAMCICLOVIR) [Concomitant]
  7. FENTANYL [Concomitant]
  8. FLUDROCORTISONE ACETATE [Concomitant]
  9. GRANISETRON HCL [Concomitant]

REACTIONS (1)
  - Pneumonia [None]
